FAERS Safety Report 11071194 (Version 1)
Quarter: 2015Q2

REPORT INFORMATION
  Report Type: Spontaneous
  Country: BE (occurrence: BE)
  Receive Date: 20150428
  Receipt Date: 20150428
  Transmission Date: 20150821
  Serious: Yes (Hospitalization, Disabling, Other)
  Sender: FDA-Public Use
  Company Number: BE-BAYER-2015-143015

PATIENT
  Age: 57 Year
  Sex: Female

DRUGS (6)
  1. BONVIVA [Concomitant]
     Active Substance: IBANDRONATE SODIUM
  2. MODURETIC 5-50 [Concomitant]
     Active Substance: AMILORIDE HYDROCHLORIDE\HYDROCHLOROTHIAZIDE
  3. PROFLOX [Suspect]
     Active Substance: CIPROFLOXACIN
     Indication: RESPIRATORY TRACT INFECTION
     Dosage: 400 MG, EVERY DAY
     Route: 048
     Dates: start: 20150330, end: 20150331
  4. CARVEDILOL. [Concomitant]
     Active Substance: CARVEDILOL
  5. CALX PLUS [Concomitant]
  6. LYSOX [Concomitant]

REACTIONS (2)
  - Balance disorder [Recovering/Resolving]
  - IIIrd nerve paresis [Recovering/Resolving]

NARRATIVE: CASE EVENT DATE: 20150330
